FAERS Safety Report 6504077-9 (Version None)
Quarter: 2009Q4

REPORT INFORMATION
  Report Type: 
  Country: None (occurrence: None)
  Receive Date: 20091217
  Receipt Date: 20091209
  Transmission Date: 20100525
  Serious: Yes (Death)
  Sender: FDA-Public Use
  Company Number: IN-BAXTER-2009BH019279

PATIENT
  Age: 54 Year
  Sex: Female

DRUGS (2)
  1. DIANEAL [Suspect]
     Indication: PERITONEAL DIALYSIS
     Route: 033
     Dates: start: 20091121, end: 20091206
  2. DIANEAL [Suspect]
     Route: 033
     Dates: start: 20091121, end: 20091206

REACTIONS (1)
  - DEATH [None]
